FAERS Safety Report 14573446 (Version 21)
Quarter: 2020Q3

REPORT INFORMATION
  Report Type: Report from Study
  Country: CA (occurrence: CA)
  Receive Date: 20180226
  Receipt Date: 20200730
  Transmission Date: 20201102
  Serious: Yes (Hospitalization, Other)
  Sender: FDA-Public Use
  Company Number: CA-BRISTOL-MYERS SQUIBB COMPANY-BMS-2017-086735

PATIENT
  Age: 65 Year
  Sex: Female

DRUGS (1)
  1. ABATACEPT [Suspect]
     Active Substance: ABATACEPT
     Indication: RHEUMATOID ARTHRITIS
     Dosage: 750 MG, Q4WK
     Route: 042
     Dates: start: 20100112

REACTIONS (27)
  - Wound secretion [Unknown]
  - Fatigue [Unknown]
  - Nasal congestion [Not Recovered/Not Resolved]
  - Muscular weakness [Unknown]
  - Vertigo [Recovered/Resolved]
  - Skin disorder [Unknown]
  - Rheumatoid arthritis [Unknown]
  - Fall [Unknown]
  - Dermatitis [Not Recovered/Not Resolved]
  - Renal disorder [Unknown]
  - Poor venous access [Not Recovered/Not Resolved]
  - Arthralgia [Unknown]
  - Neck pain [Unknown]
  - Arthralgia [Not Recovered/Not Resolved]
  - Urinary tract infection [Unknown]
  - Infusion site swelling [Unknown]
  - Back pain [Unknown]
  - Pain in extremity [Unknown]
  - Head injury [Unknown]
  - Dysuria [Unknown]
  - Secretion discharge [Unknown]
  - Paraesthesia [Unknown]
  - Hand deformity [Unknown]
  - Wound [Unknown]
  - Urine analysis abnormal [Not Recovered/Not Resolved]
  - Pyrexia [Not Recovered/Not Resolved]
  - Memory impairment [Unknown]

NARRATIVE: CASE EVENT DATE: 2013
